FAERS Safety Report 19684472 (Version 4)
Quarter: 2022Q2

REPORT INFORMATION
  Report Type: Report from Study
  Country: US (occurrence: US)
  Receive Date: 20210811
  Receipt Date: 20220414
  Transmission Date: 20220721
  Serious: Yes (Death, Hospitalization, Other)
  Sender: FDA-Public Use
  Company Number: US-GLAXOSMITHKLINE-US2021AMR125843

PATIENT
  Age: 73 Year
  Sex: Female
  Weight: 60.408 kg

DRUGS (2)
  1. BELANTAMAB MAFODOTIN [Suspect]
     Active Substance: BELANTAMAB MAFODOTIN
     Indication: Plasma cell myeloma
     Dosage: 174 MG, Z EVERY 21 DAYS
     Route: 042
     Dates: start: 20210504, end: 20210505
  2. LUCENTIS [Suspect]
     Active Substance: RANIBIZUMAB
     Indication: Product used for unknown indication
     Dosage: 0.5 MG, QD
     Dates: start: 20210416

REACTIONS (7)
  - Plasma cell myeloma [Fatal]
  - Vertebral column mass [Unknown]
  - Keratopathy [Recovered/Resolved]
  - Visual acuity reduced [Recovered/Resolved]
  - Corneal disorder [Unknown]
  - Eye pain [Unknown]
  - Night blindness [Unknown]

NARRATIVE: CASE EVENT DATE: 20210609
